FAERS Safety Report 10755202 (Version 3)
Quarter: 2015Q1

REPORT INFORMATION
  Report Type: Report from Study
  Country: US (occurrence: US)
  Receive Date: 20150202
  Receipt Date: 20150218
  Transmission Date: 20150721
  Serious: Yes (Hospitalization, Other)
  Sender: FDA-Public Use
  Company Number: US-ABBVIE-15P-163-1340089-00

PATIENT
  Age: 51 Year
  Sex: Female

DRUGS (2)
  1. HUMIRA [Suspect]
     Active Substance: ADALIMUMAB
     Route: 058
     Dates: start: 20150122
  2. HUMIRA [Suspect]
     Active Substance: ADALIMUMAB
     Indication: PSORIASIS
     Dosage: LODING DOSE OF 2 INJECTIONS
     Route: 058
     Dates: start: 20150108, end: 20150108

REACTIONS (4)
  - Supraventricular tachycardia [Unknown]
  - Chest pain [Unknown]
  - Dehydration [Unknown]
  - Anxiety [Unknown]

NARRATIVE: CASE EVENT DATE: 2015
